FAERS Safety Report 9066543 (Version 1)
Quarter: 2013Q1

REPORT INFORMATION
  Report Type: Report from Study
  Country: US (occurrence: US)
  Receive Date: 20130131
  Receipt Date: 20130131
  Transmission Date: 20140127
  Serious: No
  Sender: FDA-Public Use
  Company Number: US-ABBOTT-12P-163-1016610-00

PATIENT
  Age: 57 Year
  Sex: Male

DRUGS (5)
  1. HUMIRA [Suspect]
     Indication: PSORIASIS
     Dates: start: 20121015
  2. BENAZEPRIL [Concomitant]
     Indication: BLOOD PRESSURE
  3. GLYBURIDE [Concomitant]
     Indication: DIABETES MELLITUS
  4. CRESTOR [Concomitant]
     Indication: BLOOD CHOLESTEROL
     Dosage: AT BEDTIME
  5. METFORMIN [Concomitant]
     Indication: DIABETES MELLITUS
     Dosage: WITH FOOD

REACTIONS (1)
  - Rash [Unknown]
